FAERS Safety Report 5832812-1 (Version None)
Quarter: 2008Q3

REPORT INFORMATION
  Report Type: 
  Country: None (occurrence: None)
  Receive Date: 20080731
  Receipt Date: 20080721
  Transmission Date: 20090109
  Serious: Yes (Life-Threatening, Hospitalization, Other)
  Sender: FDA-Public Use
  Company Number: STI-2008-02431

PATIENT
  Age: 87 Year
  Sex: Female

DRUGS (10)
  1. ERYTHROMYCIN [Suspect]
     Indication: SKIN ULCER
     Dosage: 1500 MG (500 MG,3 IN 1 DAYS)
  2. AMITRIPTYLINE HCL [Suspect]
     Dosage: (25 MG, 1 DAYS)
     Dates: start: 20080620, end: 20080628
  3. ARTHROTEC [Suspect]
     Dates: start: 20080609, end: 20080628
  4. NITROFURANTOIN [Suspect]
  5. ASPIRIN [Concomitant]
  6. BETAMETHASONE VALERATE [Concomitant]
  7. ACETAMINOPHEN W/ CODEINE [Suspect]
  8. CO-CODAMOL(PA NADEINE CO) [Concomitant]
  9. FUROSEMIDE [Concomitant]
  10. LEVOTHYROXINE SODIUM [Concomitant]

REACTIONS (2)
  - HAEMATURIA [None]
  - THROMBOCYTOPENIC PURPURA [None]
